FAERS Safety Report 12385449 (Version 1)
Quarter: 2016Q2

REPORT INFORMATION
  Report Type: Report from Study
  Country: US (occurrence: US)
  Receive Date: 20160519
  Receipt Date: 20160519
  Transmission Date: 20160815
  Serious: Yes (Hospitalization)
  Sender: FDA-Public Use
  Company Number: US-ACTELION-A-US2016-136237

PATIENT
  Age: 17 Year
  Sex: Male

DRUGS (2)
  1. TRACLEER [Suspect]
     Active Substance: BOSENTAN
     Indication: PULMONARY ARTERIAL HYPERTENSION
     Dosage: UNK
     Route: 048
  2. SILDENAFIL. [Concomitant]
     Active Substance: SILDENAFIL

REACTIONS (5)
  - Activated partial thromboplastin time prolonged [Unknown]
  - Suture insertion [Unknown]
  - Laceration [Unknown]
  - Epistaxis [Unknown]
  - Syncope [Unknown]

NARRATIVE: CASE EVENT DATE: 20160411
